FAERS Safety Report 24080770 (Version 1)
Quarter: 2024Q3

REPORT INFORMATION
  Report Type: Spontaneous
  Country: US (occurrence: None)
  Receive Date: 20240711
  Receipt Date: 20240711
  Transmission Date: 20241016
  Serious: Yes (Hospitalization, Other)
  Sender: ASTRAZENECA
  Company Number: 2024A154986

PATIENT
  Age: 70 Year
  Sex: Male
  Weight: 75.3 kg

DRUGS (1)
  1. OLAPARIB [Suspect]
     Active Substance: OLAPARIB
     Indication: Hormone-refractory prostate cancer
     Route: 048

REACTIONS (38)
  - Pyrexia [Not Recovered/Not Resolved]
  - Hypercalcaemia [Not Recovered/Not Resolved]
  - Adenocarcinoma [Unknown]
  - Metastases to bone [Unknown]
  - Pneumonia aspiration [Unknown]
  - Extra-osseous Ewing^s sarcoma metastatic [Unknown]
  - Cardiomegaly [Unknown]
  - Anaemia [Recovered/Resolved]
  - Metastases to lymph nodes [Unknown]
  - Lymphocyte count decreased [Recovered/Resolved]
  - Blood alkaline phosphatase increased [Recovered/Resolved]
  - Blood lactate dehydrogenase abnormal [Recovered/Resolved]
  - Arthralgia [Recovered/Resolved]
  - Neuropathy peripheral [Not Recovered/Not Resolved]
  - Hyperglycaemia [Not Recovered/Not Resolved]
  - Dry mouth [Unknown]
  - Fatigue [Unknown]
  - Dyspnoea [Unknown]
  - Hyperphosphataemia [Unknown]
  - Hyperuricaemia [Unknown]
  - Platelet count decreased [Unknown]
  - Mental status changes [Unknown]
  - Lethargy [Unknown]
  - Dyspnoea [Unknown]
  - Sleep disorder [Unknown]
  - Hypophagia [Unknown]
  - Speech disorder [Unknown]
  - Asthenia [Unknown]
  - Emergency care [Unknown]
  - Red blood cell count decreased [Unknown]
  - Haematocrit decreased [Unknown]
  - Blood sodium decreased [Unknown]
  - Blood chloride decreased [Unknown]
  - Blood glucose increased [Unknown]
  - Sinus tachycardia [Unknown]
  - Atelectasis [Unknown]
  - Emphysema [Unknown]
  - Cardiac valve disease [Unknown]

NARRATIVE: CASE EVENT DATE: 20220101
